FAERS Safety Report 7176924-1 (Version None)
Quarter: 2010Q4

REPORT INFORMATION
  Report Type: 
  Country: None (occurrence: None)
  Receive Date: 20101207
  Receipt Date: 20101122
  Transmission Date: 20110411
  Serious: Yes (Hospitalization)
  Sender: FDA-Public Use
  Company Number: 018020

PATIENT
  Sex: Female

DRUGS (2)
  1. CIMZIA [Suspect]
     Indication: CROHN'S DISEASE
     Dosage: (SUBCUTANEOUS), (400 MG 1X4 WEEKS, PFS SUBCUTANEOUS)
     Route: 058
     Dates: start: 20090701
  2. CIMZIA [Suspect]
     Indication: CROHN'S DISEASE
     Dosage: (SUBCUTANEOUS), (400 MG 1X4 WEEKS, PFS SUBCUTANEOUS)
     Route: 058
     Dates: start: 20100531

REACTIONS (5)
  - ABDOMINAL HERNIA [None]
  - ADHESION [None]
  - MUSCLE STRAIN [None]
  - POST PROCEDURAL COMPLICATION [None]
  - SMALL INTESTINAL OBSTRUCTION [None]
